FAERS Safety Report 8983925 (Version 1)
Quarter: 2012Q4

REPORT INFORMATION
  Report Type: Spontaneous
  Country: US (occurrence: None)
  Receive Date: 20121218
  Receipt Date: 20121218
  Transmission Date: 20130627
  Serious: Yes (Congenital Anomaly)
  Sender: FDA-Public Use
  Company Number: None

PATIENT
  Sex: Male
  Weight: 1.6 kg

DRUGS (3)
  1. LISINOPRIL [Suspect]
     Indication: HYPERTENSION
     Route: 048
     Dates: start: 20121012, end: 20121026
  2. HYDRALAZINE [Concomitant]
  3. NEBIVOLOL [Concomitant]

REACTIONS (4)
  - Apgar score low [None]
  - Premature baby [None]
  - Maternal drugs affecting foetus [None]
  - Neonatal respiratory distress syndrome [None]
